FAERS Safety Report 16418680 (Version 1)
Quarter: 2019Q2

REPORT INFORMATION
  Report Type: Spontaneous
  Country: US (occurrence: US)
  Receive Date: 20190612
  Receipt Date: 20190612
  Transmission Date: 20190711
  Serious: Yes (Other)
  Sender: FDA-Public Use
  Company Number: US-AMGEN-USASP2019089698

PATIENT
  Age: 71 Year
  Sex: Female

DRUGS (1)
  1. PROLIA [Suspect]
     Active Substance: DENOSUMAB
     Indication: OSTEOPOROSIS POSTMENOPAUSAL
     Dosage: 60 MILLIGRAM, Q6MO
     Route: 065
     Dates: start: 2017

REACTIONS (8)
  - Skin odour abnormal [Unknown]
  - Pyrexia [Unknown]
  - Neck mass [Unknown]
  - Malaise [Unknown]
  - Tooth disorder [Not Recovered/Not Resolved]
  - Mass [Unknown]
  - Tooth infection [Recovered/Resolved]
  - Cough [Not Recovered/Not Resolved]
